FAERS Safety Report 8220335-4 (Version None)
Quarter: 2012Q1

REPORT INFORMATION
  Report Type: 
  Country: None (occurrence: None)
  Receive Date: 20120320
  Receipt Date: 20120305
  Transmission Date: 20120608
  Serious: Yes (Hospitalization)
  Sender: FDA-Public Use
  Company Number: US-CELGENEUS-163-21880-12010891

PATIENT
  Sex: Female

DRUGS (17)
  1. REVLIMID [Suspect]
     Indication: MULTIPLE MYELOMA
     Dosage: 25 MILLIGRAM
     Route: 048
     Dates: start: 20110318, end: 20110329
  2. MAGIC MOUTHWASH [Concomitant]
     Dosage: 1-2 TEASPOONS
     Route: 048
     Dates: start: 20101202
  3. AMITRIPTYLINE HCL [Concomitant]
     Dosage: 50 MILLIGRAM
     Route: 048
     Dates: start: 20101119, end: 20111114
  4. ZOFRAN [Concomitant]
     Indication: NAUSEA
     Dosage: 8 MILLIGRAM
     Route: 048
     Dates: start: 20100713
  5. REVLIMID [Suspect]
     Dosage: 5 MILLIGRAM
     Route: 048
     Dates: start: 20120110
  6. PROTONIX [Concomitant]
     Dosage: 40 MILLIGRAM
     Route: 048
     Dates: start: 20101126, end: 20110525
  7. TRIAMTERENE AND HYDROCHLOROTHIAZIDE [Concomitant]
     Dosage: 37.5-25MG
     Route: 048
     Dates: start: 20100727
  8. HYDROXYZINE HCL [Concomitant]
     Dosage: 25 MILLIGRAM
     Route: 048
     Dates: start: 20110222
  9. DECADRON [Concomitant]
     Indication: MULTIPLE MYELOMA
     Route: 065
     Dates: start: 20110318
  10. LORAZEPAM [Concomitant]
     Dosage: 1 MILLIGRAM
     Route: 048
     Dates: start: 20110222
  11. ASPIRIN [Concomitant]
     Dosage: 81 MILLIGRAM
     Route: 048
  12. BYSTOLIC [Concomitant]
     Dosage: 5 MILLIGRAM
     Route: 048
     Dates: start: 20100628
  13. VENLAFAXINE HCL [Concomitant]
     Dosage: 50 MILLIGRAM
     Route: 048
     Dates: start: 20110125
  14. VALTREX [Concomitant]
     Dosage: 500 MILLIGRAM
     Route: 048
     Dates: start: 20090204
  15. MULTI-VITAMINS [Concomitant]
     Route: 065
     Dates: start: 20021028
  16. ASCORBIC ACID [Concomitant]
     Dosage: 500 MILLIGRAM
     Route: 048
     Dates: start: 20100104
  17. OXYCONTIN [Concomitant]
     Dosage: 20 MILLIGRAM
     Route: 048
     Dates: start: 20110304

REACTIONS (1)
  - MYCOBACTERIUM AVIUM COMPLEX INFECTION [None]
